FAERS Safety Report 5912882-2 (Version None)
Quarter: 2008Q4

REPORT INFORMATION
  Report Type: 
  Country: None (occurrence: None)
  Receive Date: 20081003
  Receipt Date: 20080922
  Transmission Date: 20090506
  Serious: Yes (Life-Threatening, Other)
  Sender: FDA-Public Use
  Company Number: 2008TJ0228

PATIENT
  Age: 37 Year
  Sex: Female
  Weight: 86.1834 kg

DRUGS (25)
  1. TWINJECT 0.3 [Suspect]
     Indication: ANAPHYLACTIC REACTION
     Dosage: 0.3 MG PRN SUBCUTANEOUS/INTRAMUSCULAR
     Route: 058
     Dates: start: 20080919, end: 20080919
  2. VITAMINE D3 [Concomitant]
  3. TOPAMAX [Concomitant]
  4. RITALIN-SR [Concomitant]
  5. SPIRONOLACTONE [Concomitant]
  6. SPIRIVA [Concomitant]
  7. PREVACID [Concomitant]
  8. REACTINE [Concomitant]
  9. REMERON [Concomitant]
  10. FLUTAMIDE [Concomitant]
  11. SYMBICORT [Concomitant]
  12. MIRENA [Concomitant]
  13. BENADRYL [Concomitant]
  14. AMERGE [Concomitant]
  15. IBUPROFEN TABLETS [Concomitant]
  16. TORADOL [Concomitant]
  17. NAPROXEN [Concomitant]
  18. TYLENOL (CAPLET) [Concomitant]
  19. MAXERAN [Concomitant]
  20. LACTULOSE [Concomitant]
  21. COLACE [Concomitant]
  22. VENTOLIN [Concomitant]
  23. ATROVENT [Concomitant]
  24. SEROQUEL [Concomitant]
  25. UNSPECIFIED GENERIC OF METOCLOPRAMIDE [Concomitant]

REACTIONS (5)
  - DEVICE MALFUNCTION [None]
  - INJECTION SITE HAEMATOMA [None]
  - PRODUCT QUALITY ISSUE [None]
  - PUNCTURE SITE REACTION [None]
  - WOUND [None]
